FAERS Safety Report 9238249 (Version 1)
Quarter: 2013Q2

REPORT INFORMATION
  Report Type: Spontaneous
  Country: US (occurrence: US)
  Receive Date: 20130418
  Receipt Date: 20130418
  Transmission Date: 20140414
  Serious: Yes (Hospitalization)
  Sender: FDA-Public Use
  Company Number: US-SUN PHARMACEUTICAL INDUSTRIES LTD-2013SUN00473

PATIENT
  Age: 36 Year
  Sex: Male

DRUGS (6)
  1. METOPROLOL TARTRATE [Suspect]
     Indication: PRODUCT USED FOR UNKNOWN INDICATION
     Dosage: 10 TO 12 TABLETS
     Route: 048
  2. PROMETHAZINE HCL [Suspect]
     Indication: PRODUCT USED FOR UNKNOWN INDICATION
     Dosage: 4 TO 6 TABLETS
     Route: 048
  3. PREGABALIN [Suspect]
     Indication: PRODUCT USED FOR UNKNOWN INDICATION
     Dosage: 5 TO 8 CAPSULES
     Route: 065
  4. MECLIZINE [Suspect]
     Indication: PRODUCT USED FOR UNKNOWN INDICATION
     Dosage: 12 TO 15 TABLETS
     Route: 065
  5. METHAMPHETAMINE [Suspect]
     Indication: DRUG ABUSE
     Route: 065
  6. ALCOHOL [Suspect]
     Indication: DRUG ABUSE

REACTIONS (17)
  - Suicide attempt [Unknown]
  - Cardiac arrest [Recovering/Resolving]
  - Hypotension [Unknown]
  - Bradycardia [Unknown]
  - Brain injury [Unknown]
  - Mental status changes [Unknown]
  - Unresponsive to stimuli [Unknown]
  - Dysarthria [Unknown]
  - Lethargy [Unknown]
  - Hypoxia [Unknown]
  - Adrenal insufficiency [Recovering/Resolving]
  - Hepatic ischaemia [Recovering/Resolving]
  - Blindness [Not Recovered/Not Resolved]
  - Sepsis [Unknown]
  - Respiratory failure [Unknown]
  - Intentional overdose [Unknown]
  - Renal failure [Recovering/Resolving]
